FAERS Safety Report 12566315 (Version 2)
Quarter: 2016Q3

REPORT INFORMATION
  Report Type: Report from Study
  Country: US (occurrence: US)
  Receive Date: 20160718
  Receipt Date: 20160721
  Transmission Date: 20161109
  Serious: Yes (Other)
  Sender: FDA-Public Use
  Company Number: US-GILEAD-2016-0223938

PATIENT
  Age: 72 Year
  Sex: Female

DRUGS (2)
  1. ADCIRCA [Concomitant]
     Active Substance: TADALAFIL
  2. AMBRISENTAN [Suspect]
     Active Substance: AMBRISENTAN
     Indication: PULMONARY HYPERTENSION
     Dosage: 10 MG, QD
     Route: 065

REACTIONS (3)
  - Oxygen saturation decreased [Unknown]
  - Pulmonary arterial hypertension [Unknown]
  - Malaise [Unknown]
